FAERS Safety Report 22240006 (Version 1)
Quarter: 2023Q2

REPORT INFORMATION
  Report Type: Spontaneous
  Country: US (occurrence: None)
  Receive Date: 20230419
  Receipt Date: 20230419
  Transmission Date: 20230721
  Serious: Yes (Hospitalization)
  Sender: FDA-Public Use
  Company Number: None

PATIENT
  Sex: Male

DRUGS (2)
  1. RETACRIT [Suspect]
     Active Substance: EPOETIN ALFA-EPBX
     Indication: Chronic kidney disease
     Dosage: OTHER QUANTITY : 10000 UNIT/ML;?FREQUENCY : WEEKLY;?
     Route: 058
     Dates: start: 20230328
  2. RETACRIT [Suspect]
     Active Substance: EPOETIN ALFA-EPBX
     Dosage: FREQUENCY : WEEKLY;?
     Route: 058

REACTIONS (2)
  - Renal failure [None]
  - Dialysis [None]
